FAERS Safety Report 7376426-3 (Version None)
Quarter: 2011Q1

REPORT INFORMATION
  Report Type: 
  Country: None (occurrence: None)
  Receive Date: 20110325
  Receipt Date: 20110318
  Transmission Date: 20110831
  Serious: Yes (Other)
  Sender: FDA-Public Use
  Company Number: FR-AMGEN-FRASP2011014924

PATIENT
  Age: 60 Year

DRUGS (4)
  1. NPLATE [Suspect]
     Dosage: 15 A?G/KG, UNK
     Dates: end: 20101213
  2. NPLATE [Suspect]
     Indication: IDIOPATHIC THROMBOCYTOPENIC PURPURA
     Dosage: 12 A?G/KG, UNK
  3. RITUXIMAB [Concomitant]
  4. WHOLE BLOOD [Concomitant]

REACTIONS (2)
  - PLATELET COUNT DECREASED [None]
  - PLATELET COUNT INCREASED [None]
